FAERS Safety Report 4598180-0 (Version None)
Quarter: 2005Q1

REPORT INFORMATION
  Report Type: 
  Country: None (occurrence: None)
  Receive Date: 20050302
  Receipt Date: 20050222
  Transmission Date: 20050727
  Serious: No
  Sender: FDA-Public Use
  Company Number: 2004UW24691

PATIENT
  Age: 34 Year
  Sex: Female

DRUGS (5)
  1. SEROQUEL [Suspect]
     Indication: AFFECTIVE DISORDER
     Dosage: 300 MG DAILY PO
     Route: 048
     Dates: start: 20041001, end: 20041122
  2. EFFEXOR XR [Concomitant]
  3. MIRTAZAPINE [Concomitant]
  4. NEURONTIN [Concomitant]
  5. VISTARIL [Concomitant]

REACTIONS (4)
  - BURNING SENSATION [None]
  - GENERALISED OEDEMA [None]
  - RASH [None]
  - TREATMENT NONCOMPLIANCE [None]
